FAERS Safety Report 20957408 (Version 1)
Quarter: 2022Q2

REPORT INFORMATION
  Report Type: Spontaneous
  Country: US (occurrence: US)
  Receive Date: 20220614
  Receipt Date: 20220614
  Transmission Date: 20220720
  Serious: Yes (Other)
  Sender: FDA-Public Use
  Company Number: US-SANOFI-01138031

PATIENT
  Sex: Male

DRUGS (1)
  1. AMBIEN CR [Suspect]
     Active Substance: ZOLPIDEM TARTRATE
     Indication: Insomnia
     Dosage: DRUG STRUCTURE DOSAGE : NA DRUG INTERVAL DOSAGE : 3-4 TIMES A WEEK DRUG TREATMENT DURATION:NA

REACTIONS (2)
  - Drug dependence [Unknown]
  - Insomnia [Unknown]
